FAERS Safety Report 8871916 (Version 1)
Quarter: 2012Q4

REPORT INFORMATION
  Report Type: 
  Country: CN (occurrence: CN)
  Receive Date: 20121023
  Receipt Date: 20121023
  Transmission Date: 20130627
  Serious: Yes (Death, Other)
  Sender: FDA-Public Use
  Company Number: PHHY2012CN094461

PATIENT
  Age: 29 Year
  Sex: Male

DRUGS (7)
  1. CICLOSPORIN [Suspect]
     Indication: GRAFT VERSUS HOST DISEASE
  2. MYCOPHENOLATE MOFETIL [Suspect]
     Indication: GRAFT VERSUS HOST DISEASE
     Dosage: 0.5 mg, BID
  3. METHOTREXATE [Suspect]
     Indication: GRAFT VERSUS HOST DISEASE
     Dosage: 10 mg/m2, UNK
  4. FLUDARABINE [Concomitant]
     Dosage: 30 mg/m2, UNK
  5. BUSULFAN [Concomitant]
     Dosage: 4 mg/m2, UNK
  6. GANCICLOVIR [Concomitant]
     Dosage: 10 mg/m2, UNK
  7. ANTITHYMOCYTE IMMUNOGLOBULIN [Concomitant]

REACTIONS (3)
  - Acute myeloid leukaemia recurrent [Fatal]
  - Transplant rejection [Fatal]
  - Graft versus host disease [Unknown]
